FAERS Safety Report 7530403-8 (Version None)
Quarter: 2011Q2

REPORT INFORMATION
  Report Type: 
  Country: None (occurrence: None)
  Receive Date: 20110607
  Receipt Date: 20110526
  Transmission Date: 20111010
  Serious: Yes (Hospitalization, Other)
  Sender: FDA-Public Use
  Company Number: FR-ELI_LILLY_AND_COMPANY-FR201101005815

PATIENT
  Age: 82 Year
  Sex: Female

DRUGS (5)
  1. FENOFIBRATE [Concomitant]
     Dosage: UNK
  2. FORTEO [Suspect]
     Indication: OSTEOPOROSIS
     Dosage: UNK, UNKNOWN
     Route: 065
  3. APROVEL [Concomitant]
     Indication: HYPERTENSION
     Dosage: UNK
  4. ISOPTIN [Concomitant]
     Indication: HYPERTENSION
     Dosage: UNK
  5. LEVOTHYROXINE SODIUM [Concomitant]
     Dosage: UNK

REACTIONS (4)
  - RESPIRATORY FAILURE [None]
  - CARDIAC FAILURE [None]
  - SOMNOLENCE [None]
  - NAUSEA [None]
